FAERS Safety Report 12414275 (Version 2)
Quarter: 2016Q2

REPORT INFORMATION
  Report Type: Spontaneous
  Country: US (occurrence: US)
  Receive Date: 20160528
  Receipt Date: 20160531
  Transmission Date: 20160815
  Serious: Yes (Hospitalization)
  Sender: FDA-Public Use
  Company Number: US-JNJFOC-20160515835

PATIENT
  Age: 72 Year
  Sex: Female
  Weight: 77.11 kg

DRUGS (2)
  1. REGAINE FOR MEN EXTRA STRENGTH 5% [Suspect]
     Active Substance: MINOXIDIL
     Route: 061
  2. REGAINE FOR MEN EXTRA STRENGTH 5% [Suspect]
     Active Substance: MINOXIDIL
     Indication: ALOPECIA
     Route: 061
     Dates: end: 20160515

REACTIONS (5)
  - Dyspnoea [Recovered/Resolved]
  - Chest pain [Recovered/Resolved]
  - Product use issue [Recovered/Resolved]
  - Intentional product misuse [Unknown]
  - Headache [None]

NARRATIVE: CASE EVENT DATE: 2016
